FAERS Safety Report 10029253 (Version 1)
Quarter: 2014Q1

REPORT INFORMATION
  Report Type: Spontaneous
  Country: AU (occurrence: AU)
  Receive Date: 20140321
  Receipt Date: 20140321
  Transmission Date: 20141002
  Serious: Yes (Hospitalization, Other)
  Sender: FDA-Public Use
  Company Number: PHHY2014AU032811

PATIENT
  Age: 63 Year
  Sex: Male

DRUGS (15)
  1. CICLOSPORIN [Suspect]
     Indication: IMMUNOSUPPRESSION
  2. METHYLPREDNISOLONE [Suspect]
     Indication: IMMUNOSUPPRESSION
     Dosage: 1 G, UNK
     Route: 042
  3. METHYLPREDNISOLONE [Suspect]
     Dosage: 250 MG, UNK
     Route: 042
  4. METHYLPREDNISOLONE [Suspect]
     Dosage: 250 MG, DAILY
     Route: 042
  5. BASILIXIMAB [Suspect]
     Indication: IMMUNOSUPPRESSION
     Dosage: 20 MG, UNK
  6. PREDNISOLONE [Suspect]
     Indication: IMMUNOSUPPRESSION
     Dosage: 30 MG, DAILY
     Route: 048
  7. PREDNISOLONE [Suspect]
     Dosage: 50 MG, DAILY
  8. PREDNISOLONE [Suspect]
     Dosage: 40 MG, DAILY
  9. PREDNISOLONE [Suspect]
     Dosage: 20 MG, DAILY
  10. MYCOPHENOLATE MOFETIL [Suspect]
     Indication: IMMUNOSUPPRESSION
     Dosage: 1 G, BID
  11. MYCOPHENOLATE MOFETIL [Suspect]
     Dosage: 1 G, BID
  12. MYCOPHENOLATE MOFETIL [Suspect]
     Dosage: 500 MG, BID
  13. TACROLIMUS [Suspect]
     Indication: IMMUNOSUPPRESSION
     Dosage: 0.075 MG/KG, BID
  14. AZATHIOPRINE [Suspect]
     Indication: IMMUNOSUPPRESSION
     Dosage: 1.5 MG/KG, DAILY
  15. TRIMETHOPRIM SULFAMETHOXAZOLE [Concomitant]
     Indication: ANTIFUNGAL PROPHYLAXIS

REACTIONS (10)
  - Transplant rejection [Recovered/Resolved]
  - Anaemia [Recovered/Resolved]
  - Rheumatoid arthritis [Recovered/Resolved]
  - Arthralgia [Recovered/Resolved]
  - Mobility decreased [Recovered/Resolved]
  - Angina unstable [Recovered/Resolved]
  - Polyarthritis [Recovered/Resolved]
  - Arthropathy [Recovered/Resolved]
  - Joint effusion [Recovered/Resolved]
  - Abasia [Recovered/Resolved]
